FAERS Safety Report 11398558 (Version 1)
Quarter: 2015Q3

REPORT INFORMATION
  Report Type: Report from Study
  Country: IT (occurrence: IT)
  Receive Date: 20150820
  Receipt Date: 20150820
  Transmission Date: 20151125
  Serious: Yes (Other)
  Sender: FDA-Public Use
  Company Number: IT-ROCHE-1622032

PATIENT
  Sex: Male

DRUGS (2)
  1. ESBRIET [Suspect]
     Active Substance: PIRFENIDONE
     Indication: IDIOPATHIC PULMONARY FIBROSIS
     Route: 065
     Dates: end: 20140528
  2. ESBRIET [Suspect]
     Active Substance: PIRFENIDONE
     Dosage: 3 CAPSULES DAILY
     Route: 065
     Dates: start: 20140612

REACTIONS (9)
  - Photosensitivity reaction [Recovering/Resolving]
  - Decreased appetite [Unknown]
  - Erythema [Unknown]
  - Gastritis [Unknown]
  - Abdominal pain [Unknown]
  - Dermatitis [Recovering/Resolving]
  - Anxiety [Unknown]
  - Pruritus [Unknown]
  - Stress [Unknown]
